FAERS Safety Report 5216173-7 (Version None)
Quarter: 2007Q1

REPORT INFORMATION
  Report Type: 
  Country: None (occurrence: None)
  Receive Date: 20070123
  Receipt Date: 20070110
  Transmission Date: 20070707
  Serious: Yes (Hospitalization)
  Sender: FDA-Public Use
  Company Number: GB-ELI_LILLY_AND_COMPANY-GB200701001738

PATIENT
  Age: 91 Year
  Sex: Female

DRUGS (12)
  1. FLUOXETINE [Suspect]
     Indication: DEPRESSION
     Dosage: 20 MG, UNK
     Route: 048
     Dates: end: 20061208
  2. DIGOXIN [Concomitant]
     Indication: ATRIAL FIBRILLATION
     Dosage: 125 UG, UNK
     Route: 048
     Dates: start: 20061210
  3. DIGOXIN [Concomitant]
     Dosage: 62.5 UG, UNK
     Route: 048
     Dates: end: 20061210
  4. ADCAL-D3 [Concomitant]
     Dosage: 2 D/F, DAILY (1/D)
     Route: 065
  5. ASPIRIN [Concomitant]
     Dosage: 75 MG, UNK
     Route: 048
  6. BRICANYL [Concomitant]
     Dosage: 500 UG, AS NEEDED
     Route: 055
  7. CO-AMILOFRUSE [Concomitant]
     Indication: DIURETIC THERAPY
     Dosage: 1 D/F, DAILY (1/D)
     Route: 048
  8. LEVOTHYROXINE SODIUM [Concomitant]
     Indication: THYROID DISORDER
     Dosage: 50 UG, DAILY (1/D)
     Route: 048
  9. PARACETAMOL [Concomitant]
     Dosage: UNK, AS NEEDED
     Route: 065
  10. PULMICORT [Concomitant]
     Dosage: 100 UG, AS NEEDED
     Route: 055
  11. SENNA [Concomitant]
     Route: 065
  12. ZOPICLONE [Concomitant]
     Dosage: 7.5 MG, DAILY (1/D)
     Route: 065

REACTIONS (2)
  - CONFUSIONAL STATE [None]
  - UNRESPONSIVE TO STIMULI [None]
